FAERS Safety Report 11748148 (Version 3)
Quarter: 2016Q2

REPORT INFORMATION
  Report Type: Spontaneous
  Country: CA (occurrence: CA)
  Receive Date: 20151117
  Receipt Date: 20160620
  Transmission Date: 20160815
  Serious: Yes (Other)
  Sender: FDA-Public Use
  Company Number: CA-PFIZER INC-2015384009

PATIENT
  Age: 61 Year
  Sex: Male

DRUGS (7)
  1. DICLOFENAC POTASSIUM. [Concomitant]
     Active Substance: DICLOFENAC POTASSIUM
     Dosage: 50 MG, 1 TABLET TWO TIMES DAILY AS NEEDED
     Route: 048
     Dates: start: 20140724
  2. METHOTREXATE SODIUM. [Suspect]
     Active Substance: METHOTREXATE SODIUM
     Indication: RHEUMATOID ARTHRITIS
     Dosage: 15 MG, WEEKLY
     Dates: start: 20110506, end: 201207
  3. HYDROXYCHLOROQUINE [Suspect]
     Active Substance: HYDROXYCHLOROQUINE
     Indication: RHEUMATOID ARTHRITIS
     Dosage: 200 MG, 2X/DAY
     Dates: start: 20070619
  4. TAMSULOSIN HCL [Concomitant]
     Active Substance: TAMSULOSIN
     Dosage: 0.4 UNK, UNK
     Route: 048
  5. SULFASALAZINE. [Suspect]
     Active Substance: SULFASALAZINE
     Indication: RHEUMATOID ARTHRITIS
     Dosage: 1 G, 2X/DAY
     Route: 048
     Dates: start: 20130812, end: 20131104
  6. ARAVA [Suspect]
     Active Substance: LEFLUNOMIDE
     Indication: RHEUMATOID ARTHRITIS
     Dosage: 10 MG, DAILY
     Dates: start: 20131104, end: 201401
  7. ARAVA [Suspect]
     Active Substance: LEFLUNOMIDE
     Dosage: 10 MG, DAILY
     Dates: start: 20150331, end: 20150615

REACTIONS (15)
  - Lethargy [Unknown]
  - Cartilage atrophy [Unknown]
  - Drug intolerance [Unknown]
  - Diarrhoea [Unknown]
  - Dysgeusia [Unknown]
  - Anxiety [Unknown]
  - Condition aggravated [Unknown]
  - Nausea [Unknown]
  - Renal impairment [Unknown]
  - Drug effect incomplete [Unknown]
  - Depression [Unknown]
  - Rheumatoid arthritis [Unknown]
  - Malaise [Unknown]
  - Asthenia [Unknown]
  - Panic attack [Unknown]
